FAERS Safety Report 9615599 (Version 1)
Quarter: 2013Q4

REPORT INFORMATION
  Report Type: Spontaneous
  Country: AU (occurrence: US)
  Receive Date: 20131011
  Receipt Date: 20131011
  Transmission Date: 20140711
  Serious: No
  Sender: FDA-Public Use
  Company Number: AU-PURDUE-USA-2013-0099354

PATIENT
  Age: 75 Year
  Sex: Male

DRUGS (1)
  1. NORSPAN (NDA 21-306) [Suspect]
     Indication: PRODUCT USED FOR UNKNOWN INDICATION
     Dosage: UNK
     Route: 062

REACTIONS (2)
  - Application site vesicles [Recovered/Resolved]
  - Application site rash [Recovered/Resolved]
